FAERS Safety Report 11075569 (Version 1)
Quarter: 2015Q2

REPORT INFORMATION
  Report Type: Spontaneous
  Country: US (occurrence: US)
  Receive Date: 20150429
  Receipt Date: 20150429
  Transmission Date: 20150821
  Serious: No
  Sender: FDA-Public Use
  Company Number: US-PFIZER INC-2015144357

PATIENT
  Sex: Male

DRUGS (4)
  1. NEURONTIN [Suspect]
     Active Substance: GABAPENTIN
     Indication: CELLULITIS
     Dosage: UNK
  2. WARFARIN [Suspect]
     Active Substance: WARFARIN
     Indication: NEURALGIA
  3. NEURONTIN [Suspect]
     Active Substance: GABAPENTIN
     Indication: NEURALGIA
  4. WARFARIN [Suspect]
     Active Substance: WARFARIN
     Indication: CELLULITIS
     Dosage: UNK

REACTIONS (2)
  - Condition aggravated [Unknown]
  - Pain [Unknown]
